FAERS Safety Report 5039808-0 (Version None)
Quarter: 2006Q2

REPORT INFORMATION
  Report Type: 
  Country: None (occurrence: None)
  Receive Date: 20060601
  Receipt Date: 20060110
  Transmission Date: 20061013
  Serious: No
  Sender: FDA-Public Use
  Company Number: 2006PV006903

PATIENT
  Age: 61 Year
  Sex: Female
  Weight: 88.905 kg

DRUGS (6)
  1. BYETTA [Suspect]
     Indication: DIABETES MELLITUS NON-INSULIN-DEPENDENT
     Dosage: SEE IMAGE
     Route: 058
     Dates: start: 20050913, end: 20051012
  2. BYETTA [Suspect]
     Indication: DIABETES MELLITUS NON-INSULIN-DEPENDENT
     Dosage: SEE IMAGE
     Route: 058
     Dates: start: 20051013
  3. METFORMIN [Concomitant]
  4. LANTUS [Concomitant]
  5. AVANDIA [Concomitant]
  6. LAMISIL [Concomitant]

REACTIONS (5)
  - DECREASED APPETITE [None]
  - NAIL DISORDER [None]
  - ONYCHOCLASIS [None]
  - ONYCHOMYCOSIS [None]
  - WEIGHT DECREASED [None]
